FAERS Safety Report 9830807 (Version 1)
Quarter: 2014Q1

REPORT INFORMATION
  Report Type: Spontaneous
  Country: US (occurrence: US)
  Receive Date: 20140120
  Receipt Date: 20140120
  Transmission Date: 20141002
  Serious: Yes (Other)
  Sender: FDA-Public Use
  Company Number: US-BAXTER-2014BAX002027

PATIENT
  Age: 36 Year
  Sex: Female

DRUGS (1)
  1. OSMITROL INJECTION (MANNITOL INJECTION, USP) [Suspect]
     Indication: NEPHRECTOMY
     Route: 042

REACTIONS (2)
  - Compartment syndrome [Recovered/Resolved]
  - Infusion site extravasation [Recovered/Resolved]
